FAERS Safety Report 10506958 (Version 1)
Quarter: 2014Q3

REPORT INFORMATION
  Report Type: Spontaneous
  Country: US (occurrence: None)
  Receive Date: 20140915
  Receipt Date: 20140915
  Transmission Date: 20150326
  Serious: Yes (Other)
  Sender: FDA-Public Use
  Company Number: 2013-US-001660

PATIENT
  Age: 46 Year
  Sex: Female
  Weight: 111 kg

DRUGS (8)
  1. ATORVASTATIN ( ATORVASTATIN) [Concomitant]
  2. MODAFINIL ( MODAFINIL) [Concomitant]
  3. ESTRADIOL ( ESTRADIOL) [Concomitant]
  4. DULOXETINE ( DULOXETINE) [Concomitant]
  5. XYREM [Suspect]
     Active Substance: SODIUM OXYBATE
     Indication: NARCOLEPSY
     Route: 048
     Dates: start: 201309
  6. LOSARTAN ( LOSARTAN) [Concomitant]
  7. HYDROCHLOROTHIAZIDE ( HYDROCHLOROTHIAZIDE) [Concomitant]
     Active Substance: HYDROCHLOROTHIAZIDE
  8. METFORMIN [Concomitant]
     Active Substance: METFORMIN HYDROCHLORIDE

REACTIONS (8)
  - Nausea [None]
  - Hyperhidrosis [None]
  - Blood pressure increased [None]
  - Feeling hot [None]
  - Feeling abnormal [None]
  - Treatment noncompliance [None]
  - Paraesthesia [None]
  - Headache [None]

NARRATIVE: CASE EVENT DATE: 201309
